FAERS Safety Report 16738455 (Version 2)
Quarter: 2019Q3

REPORT INFORMATION
  Report Type: Spontaneous
  Country: US (occurrence: US)
  Receive Date: 20190826
  Receipt Date: 20190905
  Transmission Date: 20191005
  Serious: Yes (Other)
  Sender: FDA-Public Use
  Company Number: US-ROCHE-2379943

PATIENT
  Age: 55 Year
  Sex: Female
  Weight: 66.2 kg

DRUGS (1)
  1. TRASTUZUMAB EMTANSINE [Suspect]
     Active Substance: ADO-TRASTUZUMAB EMTANSINE
     Indication: BREAST CANCER
     Route: 042
     Dates: start: 20150416, end: 20160317

REACTIONS (1)
  - Phlebitis [Unknown]

NARRATIVE: CASE EVENT DATE: 20151022
